FAERS Safety Report 9358941 (Version 1)
Quarter: 2013Q2

REPORT INFORMATION
  Report Type: Spontaneous
  Country: JP (occurrence: JP)
  Receive Date: 20130620
  Receipt Date: 20130620
  Transmission Date: 20140414
  Serious: Yes (Death)
  Sender: FDA-Public Use
  Company Number: JP-BRACCO-007163

PATIENT
  Sex: 0

DRUGS (1)
  1. IOPAMIRON [Suspect]
     Indication: ANGIOGRAM
     Route: 042
     Dates: start: 201306, end: 201306

REACTIONS (1)
  - Acute myocardial infarction [Fatal]
